FAERS Safety Report 10178014 (Version 1)
Quarter: 2014Q2

REPORT INFORMATION
  Report Type: Spontaneous
  Country: US (occurrence: US)
  Receive Date: 20140517
  Receipt Date: 20140517
  Transmission Date: 20141212
  Serious: Yes (Other)
  Sender: FDA-Public Use
  Company Number: US-ROCHE-1401548

PATIENT
  Sex: Male

DRUGS (1)
  1. GAZYVA [Suspect]
     Indication: CHRONIC LYMPHOCYTIC LEUKAEMIA
     Route: 042
     Dates: start: 20140403

REACTIONS (2)
  - Haemolytic anaemia [Unknown]
  - Neutropenia [Unknown]
